FAERS Safety Report 14914488 (Version 1)
Quarter: 2018Q2

REPORT INFORMATION
  Report Type: Report from Study
  Country: US (occurrence: US)
  Receive Date: 20180518
  Receipt Date: 20180518
  Transmission Date: 20180711
  Serious: Yes (Other)
  Sender: FDA-Public Use
  Company Number: US-JAZZ-2017-US-017474

PATIENT
  Age: 27 Year
  Sex: Female

DRUGS (21)
  1. ZANAFLEX [Concomitant]
     Active Substance: TIZANIDINE HYDROCHLORIDE
  2. ACETYLSALICYLIC ACID [Concomitant]
     Active Substance: ASPIRIN
  3. GABAPENTIN. [Concomitant]
     Active Substance: GABAPENTIN
  4. XYREM [Suspect]
     Active Substance: SODIUM OXYBATE
     Dosage: 3.25 UNK, UNK
     Route: 048
  5. ARMODAFINIL. [Concomitant]
     Active Substance: ARMODAFINIL
  6. TRAMADOL HCL [Concomitant]
     Active Substance: TRAMADOL HYDROCHLORIDE
  7. ACETAMINOPHEN. [Concomitant]
     Active Substance: ACETAMINOPHEN
  8. WELLBUTRIN [Concomitant]
     Active Substance: BUPROPION HYDROCHLORIDE
  9. MODAFINIL. [Concomitant]
     Active Substance: MODAFINIL
  10. IBUPROFEN. [Concomitant]
     Active Substance: IBUPROFEN
  11. XYREM [Suspect]
     Active Substance: SODIUM OXYBATE
     Dosage: 3.0 G, BID
     Route: 048
     Dates: start: 201801, end: 2018
  12. LYRICA [Concomitant]
     Active Substance: PREGABALIN
  13. DULOXETINE HCL [Concomitant]
     Active Substance: DULOXETINE HYDROCHLORIDE
  14. XYREM [Suspect]
     Active Substance: SODIUM OXYBATE
     Dosage: 3.0 G, BID
     Route: 048
     Dates: start: 2018
  15. ADDERALL [Concomitant]
     Active Substance: AMPHETAMINE ASPARTATE\AMPHETAMINE SULFATE\DEXTROAMPHETAMINE SACCHARATE\DEXTROAMPHETAMINE SULFATE
  16. XYREM [Suspect]
     Active Substance: SODIUM OXYBATE
     Dosage: 3.5 G, BID
     Route: 048
     Dates: start: 2018, end: 2018
  17. CYCLOBENZAPRINE. [Concomitant]
     Active Substance: CYCLOBENZAPRINE
  18. RITALIN [Concomitant]
     Active Substance: METHYLPHENIDATE HYDROCHLORIDE
  19. XYREM [Suspect]
     Active Substance: SODIUM OXYBATE
     Indication: NARCOLEPSY
     Dosage: 2.5 G, BID
     Route: 048
     Dates: start: 201712, end: 201801
  20. AMBIEN [Concomitant]
     Active Substance: ZOLPIDEM TARTRATE
  21. PROAIR HFA [Concomitant]
     Active Substance: ALBUTEROL SULFATE

REACTIONS (7)
  - Weight decreased [Recovering/Resolving]
  - Feeding disorder [Unknown]
  - Nausea [Unknown]
  - Gastroenteritis viral [Not Recovered/Not Resolved]
  - Headache [Unknown]
  - Anxiety [Unknown]
  - Influenza [Not Recovered/Not Resolved]

NARRATIVE: CASE EVENT DATE: 201712
